FAERS Safety Report 25898729 (Version 1)
Quarter: 2025Q4

REPORT INFORMATION
  Report Type: Spontaneous
  Country: US (occurrence: US)
  Receive Date: 20251009
  Receipt Date: 20251009
  Transmission Date: 20260118
  Serious: No
  Sender: SANOFI AVENTIS
  Company Number: US-SA-2025SA298208

PATIENT
  Sex: Female
  Weight: 70.45 kg

DRUGS (8)
  1. DUPIXENT [Suspect]
     Active Substance: DUPILUMAB
     Indication: Dermatitis atopic
     Dosage: 300 MG, QOW
     Route: 058
  2. VITAMIN B12 [Concomitant]
     Active Substance: CYANOCOBALAMIN
  3. TACROLIMUS [Concomitant]
     Active Substance: TACROLIMUS
  4. METFORMIN [Concomitant]
     Active Substance: METFORMIN HYDROCHLORIDE
  5. VITAMIN C [Concomitant]
     Active Substance: ASCORBIC ACID
  6. SELENIUM [Concomitant]
     Active Substance: SELENIUM
  7. ARMOUR THYROID [Concomitant]
     Active Substance: THYROID, PORCINE
  8. PRASTERONE [Concomitant]
     Active Substance: PRASTERONE

REACTIONS (5)
  - Pruritus [Unknown]
  - Rebound effect [Unknown]
  - Product dose omission issue [Unknown]
  - Rash [Unknown]
  - Rebound effect [Unknown]
